FAERS Safety Report 11026290 (Version 1)
Quarter: 2015Q2

REPORT INFORMATION
  Report Type: Spontaneous
  Country: US (occurrence: None)
  Receive Date: 20150413
  Receipt Date: 20150413
  Transmission Date: 20150821
  Serious: No
  Sender: FDA-Public Use
  Company Number: None

PATIENT
  Age: 42 Year
  Sex: Female
  Weight: 72.58 kg

DRUGS (13)
  1. PERCOCET [Suspect]
     Active Substance: ACETAMINOPHEN\OXYCODONE HYDROCHLORIDE
     Indication: NEOPLASM MALIGNANT
     Dosage: 10 MG EVERY 4 HOURS  FOUR TIMES DAILY  TAKEN BY MOUTH
     Route: 048
     Dates: start: 20150301, end: 20150401
  2. VALIUM [Concomitant]
     Active Substance: DIAZEPAM
  3. OXYCODONE [Concomitant]
     Active Substance: OXYCODONE
  4. PHILLIPS COLON CLEANSE [Concomitant]
  5. PERCOCET [Suspect]
     Active Substance: ACETAMINOPHEN\OXYCODONE HYDROCHLORIDE
     Indication: INTERVERTEBRAL DISC DEGENERATION
     Dosage: 10 MG EVERY 4 HOURS  FOUR TIMES DAILY  TAKEN BY MOUTH
     Route: 048
     Dates: start: 20150301, end: 20150401
  6. PHILLIPS STOOL SOFTENER BULK DOCUSATE [Concomitant]
     Active Substance: DOCUSATE SODIUM
  7. SYNTHROID [Concomitant]
     Active Substance: LEVOTHYROXINE SODIUM
  8. MULTI-VITAMIN [Concomitant]
     Active Substance: .ALPHA.-TOCOPHEROL ACETATE, DL-\ASCORBIC ACID\CYANOCOBALAMIN\FLUORIDE ION\FOLIC ACID\NIACIN\PYRIDOXINE\RIBOFLAVIN\THIAMINE\VITAMIN A\VITAMIN D
  9. ONE-A-DAY MULTI-VITAMIN FOR WOMEN [Concomitant]
  10. PERCOCET [Suspect]
     Active Substance: ACETAMINOPHEN\OXYCODONE HYDROCHLORIDE
     Indication: ARTHRITIS
     Dosage: 10 MG EVERY 4 HOURS  FOUR TIMES DAILY  TAKEN BY MOUTH
     Route: 048
     Dates: start: 20150301, end: 20150401
  11. COLONASE [Concomitant]
  12. ADDERALL [Concomitant]
     Active Substance: AMPHETAMINE ASPARTATE\AMPHETAMINE SULFATE\DEXTROAMPHETAMINE SACCHARATE\DEXTROAMPHETAMINE SULFATE
  13. WELLBUTRIN [Concomitant]
     Active Substance: BUPROPION HYDROCHLORIDE

REACTIONS (4)
  - Drug ineffective [None]
  - Product substitution issue [None]
  - Feeling abnormal [None]
  - Product quality issue [None]

NARRATIVE: CASE EVENT DATE: 20150302
